FAERS Safety Report 23691282 (Version 1)
Quarter: 2024Q2

REPORT INFORMATION
  Report Type: Spontaneous
  Country: US (occurrence: US)
  Receive Date: 20240401
  Receipt Date: 20240401
  Transmission Date: 20240715
  Serious: No
  Sender: FDA-Public Use
  Company Number: US-TEVA-VS-3156958

PATIENT
  Age: 27 Year
  Sex: Female

DRUGS (6)
  1. AJOVY [Suspect]
     Active Substance: FREMANEZUMAB-VFRM
     Indication: Migraine
     Dosage: 225/1.5 MG/ML?(LAST INJECTION ON 07FEB2024)
     Route: 065
     Dates: start: 20230823
  2. AJOVY [Suspect]
     Active Substance: FREMANEZUMAB-VFRM
  3. REMICADE [Concomitant]
     Active Substance: INFLIXIMAB
     Dosage: INFUSION EVERY 8 WEEKS
  4. HYDROCHLOROTHIAZIDE [Concomitant]
     Active Substance: HYDROCHLOROTHIAZIDE
  5. NEXPLANON [Concomitant]
     Active Substance: ETONOGESTREL
     Indication: Contraception
  6. UBRELVY [Concomitant]
     Active Substance: UBROGEPANT
     Indication: Migraine

REACTIONS (3)
  - Injection site erythema [Not Recovered/Not Resolved]
  - Injection site pruritus [Not Recovered/Not Resolved]
  - Injection site swelling [Not Recovered/Not Resolved]
